FAERS Safety Report 8529500-X (Version None)
Quarter: 2012Q3

REPORT INFORMATION
  Report Type: 
  Country: None (occurrence: None)
  Receive Date: 20120723
  Receipt Date: 20120712
  Transmission Date: 20120928
  Serious: Yes (Other)
  Sender: FDA-Public Use
  Company Number: NO-ACCORD-014111

PATIENT
  Sex: Male

DRUGS (3)
  1. TACROLIMUS [Suspect]
     Indication: IMMUNOSUPPRESSION
  2. CELLCEPT [Suspect]
     Indication: IMMUNOSUPPRESSION
  3. MABTHERA [Suspect]
     Indication: RHEUMATOID ARTHRITIS
     Dosage: TWO RITUXIMAB INFUSIONS OF 1000 MG EACH, 2 WEEKS APART.
     Dates: start: 20070601

REACTIONS (2)
  - NEUTROPENIA [None]
  - HYPOGAMMAGLOBULINAEMIA [None]
